FAERS Safety Report 20724696 (Version 7)
Quarter: 2022Q3

REPORT INFORMATION
  Report Type: Report from Study
  Country: US (occurrence: US)
  Receive Date: 20220419
  Receipt Date: 20220929
  Transmission Date: 20221027
  Serious: Yes (Hospitalization, Other)
  Sender: FDA-Public Use
  Company Number: US-ELI_LILLY_AND_COMPANY-US202201006187

PATIENT
  Age: 63 Year
  Sex: Female

DRUGS (7)
  1. VERZENIO [Suspect]
     Active Substance: ABEMACICLIB
     Indication: Breast cancer metastatic
     Dosage: 150 MG, BID (ONE IN MORNING AND ONE IN EVENING)
     Route: 048
     Dates: start: 20211201, end: 20220208
  2. VERZENIO [Suspect]
     Active Substance: ABEMACICLIB
     Dosage: 150 MG, BID (ONE IN MORNING AND ONE IN EVENING)
     Route: 048
     Dates: end: 20220313
  3. VERZENIO [Suspect]
     Active Substance: ABEMACICLIB
     Dosage: 150 MG, BID
     Route: 048
  4. VERZENIO [Suspect]
     Active Substance: ABEMACICLIB
     Dosage: 100 MG, BID
     Route: 048
     Dates: start: 20220107, end: 20220608
  5. VERZENIO [Suspect]
     Active Substance: ABEMACICLIB
     Dosage: 50 MG, UNKNOWN
     Route: 048
     Dates: start: 20220618
  6. VERZENIO [Suspect]
     Active Substance: ABEMACICLIB
     Dosage: 50 MG, UNKNOWN
     Route: 048
  7. LETROZOLE [Suspect]
     Active Substance: LETROZOLE
     Indication: Product used for unknown indication
     Dosage: 2.5 MG, DAILY
     Route: 048

REACTIONS (45)
  - Vertigo [Unknown]
  - Illness [Unknown]
  - Dehydration [Unknown]
  - Suicidal ideation [Recovered/Resolved]
  - Diarrhoea [Recovered/Resolved]
  - Malignant neoplasm progression [Unknown]
  - Blood potassium decreased [Recovered/Resolved]
  - Bone disorder [Not Recovered/Not Resolved]
  - Pallor [Unknown]
  - Hormone level abnormal [Unknown]
  - Reading disorder [Unknown]
  - Memory impairment [Unknown]
  - Hallucination, visual [Unknown]
  - Depression [Unknown]
  - Crying [Unknown]
  - Immune system disorder [Unknown]
  - Tremor [Unknown]
  - Feeling abnormal [Unknown]
  - Bone pain [Not Recovered/Not Resolved]
  - Blood electrolytes decreased [Unknown]
  - Dairy intolerance [Unknown]
  - Stress [Unknown]
  - Anger [Unknown]
  - Breast pain [Unknown]
  - Chapped lips [Unknown]
  - Mucosal dryness [Unknown]
  - Back pain [Unknown]
  - Weight increased [Unknown]
  - Weight fluctuation [Not Recovered/Not Resolved]
  - Glucose tolerance impaired [Unknown]
  - Neuropathy peripheral [Unknown]
  - Arthralgia [Not Recovered/Not Resolved]
  - Weight decreased [Recovering/Resolving]
  - Illness [Unknown]
  - Constipation [Unknown]
  - Feeling abnormal [Unknown]
  - Product dose omission issue [Unknown]
  - Red blood cell count decreased [Recovered/Resolved]
  - White blood cell count decreased [Recovered/Resolved]
  - Fatigue [Not Recovered/Not Resolved]
  - Dyspepsia [Unknown]
  - Decreased appetite [Recovering/Resolving]
  - Lip dry [Unknown]
  - Diarrhoea [Recovered/Resolved]
  - Drug ineffective [Unknown]

NARRATIVE: CASE EVENT DATE: 20220408
